FAERS Safety Report 9230488 (Version 1)
Quarter: 2013Q1

REPORT INFORMATION
  Report Type: Spontaneous
  Country: US (occurrence: None)
  Receive Date: 20121031
  Receipt Date: 20121031
  Transmission Date: 20140127
  Serious: No
  Sender: FDA-Public Use
  Company Number: PHEH2012US016883

PATIENT
  Sex: Female
  Weight: 58 kg

DRUGS (5)
  1. GILENYA (FTY)CAPSULE, 0.5MG [Suspect]
     Route: 048
  2. LASIX (FUROSEMIDE) [Concomitant]
  3. PRILOSEC [Concomitant]
  4. FAMPRIDINE (FAMPRIDINE) [Concomitant]
  5. TRAMADOL HYDROCHLORIDE (TRAMDOL HYRDROCHLORIDE) [Concomitant]

REACTIONS (2)
  - Hypoaesthesia [None]
  - Memory impairment [None]
